FAERS Safety Report 6173323-6 (Version None)
Quarter: 2009Q2

REPORT INFORMATION
  Report Type: 
  Country: None (occurrence: None)
  Receive Date: 20090430
  Receipt Date: 20090429
  Transmission Date: 20091009
  Serious: Yes (Hospitalization)
  Sender: FDA-Public Use
  Company Number: BE-ABBOTT-09P-013-0570472-00

PATIENT
  Sex: Male

DRUGS (1)
  1. KALETRA [Suspect]
     Indication: HIV INFECTION
     Dosage: 200 MG /50 MG
     Route: 048

REACTIONS (1)
  - GENERAL PHYSICAL HEALTH DETERIORATION [None]
